FAERS Safety Report 5106133-9 (Version None)
Quarter: 2006Q3

REPORT INFORMATION
  Report Type: 
  Country: None (occurrence: None)
  Receive Date: 20060912
  Receipt Date: 20060825
  Transmission Date: 20061208
  Serious: Yes (Death, Hospitalization)
  Sender: FDA-Public Use
  Company Number: DE200608000868

PATIENT
  Age: 53 Year
  Sex: Male

DRUGS (5)
  1. ALIMTA [Suspect]
     Indication: MESOTHELIOMA
     Dosage: 500 MG/M2, INTRAVENOUS
     Route: 042
     Dates: start: 20060101, end: 20060801
  2. GEMZAR [Suspect]
     Dosage: 1000 MG/M2, INTRAVENOUS
     Route: 042
     Dates: start: 20060814, end: 20060814
  3. FOLIC ACID [Concomitant]
  4. CYANOCOBALAMIN [Concomitant]
  5. CISPLATIN [Concomitant]

REACTIONS (8)
  - ASPHYXIA [None]
  - BRADYCARDIA [None]
  - CARDIAC FAILURE [None]
  - CONGESTIVE CARDIOMYOPATHY [None]
  - DIALYSIS [None]
  - ELECTROCARDIOGRAM ABNORMAL [None]
  - LOSS OF CONSCIOUSNESS [None]
  - RENAL FAILURE ACUTE [None]
